FAERS Safety Report 9562776 (Version 2)
Quarter: 2013Q3

REPORT INFORMATION
  Report Type: Report from Study
  Country: DE (occurrence: DE)
  Receive Date: 20130927
  Receipt Date: 20130927
  Transmission Date: 20140515
  Serious: Yes (Hospitalization, Other)
  Sender: FDA-Public Use
  Company Number: DE-ABBVIE-13P-062-1134497-00

PATIENT
  Age: 74 Year
  Sex: Female

DRUGS (17)
  1. HUMIRA [Suspect]
     Indication: RHEUMATOID ARTHRITIS
     Route: 058
     Dates: start: 20050930
  2. HUMIRA [Suspect]
     Route: 058
  3. CORTISONE [Concomitant]
     Indication: PRODUCT USED FOR UNKNOWN INDICATION
  4. TORASEMID [Concomitant]
     Indication: PRODUCT USED FOR UNKNOWN INDICATION
     Dosage: 10 MG TWICE A DAY
  5. AMLODIPIN [Concomitant]
     Indication: PRODUCT USED FOR UNKNOWN INDICATION
  6. BLOPRESS [Concomitant]
     Indication: PRODUCT USED FOR UNKNOWN INDICATION
  7. ASS [Concomitant]
     Indication: PRODUCT USED FOR UNKNOWN INDICATION
  8. SIMVADURA [Concomitant]
     Indication: PRODUCT USED FOR UNKNOWN INDICATION
  9. OMEPRAZOL [Concomitant]
     Indication: PRODUCT USED FOR UNKNOWN INDICATION
  10. BISOPROLOL [Concomitant]
     Indication: PRODUCT USED FOR UNKNOWN INDICATION
     Dosage: 2.5 MG BID
  11. ALLOPURINOL [Concomitant]
     Indication: PRODUCT USED FOR UNKNOWN INDICATION
  12. ISCOVER [Concomitant]
     Indication: PRODUCT USED FOR UNKNOWN INDICATION
  13. ACTRAPHANE [Concomitant]
     Indication: PRODUCT USED FOR UNKNOWN INDICATION
  14. LODOTRA [Concomitant]
     Indication: PRODUCT USED FOR UNKNOWN INDICATION
  15. NOVAMINSULFON [Concomitant]
     Indication: PRODUCT USED FOR UNKNOWN INDICATION
  16. BIPHOSPHONATE [Concomitant]
     Indication: OSTEOPOROSIS
  17. CHOLECALOCIFERON/CALCIUM [Concomitant]
     Indication: PRODUCT USED FOR UNKNOWN INDICATION

REACTIONS (22)
  - Pulmonary oedema [Recovering/Resolving]
  - Renal failure [Recovering/Resolving]
  - Cardiac disorder [Recovering/Resolving]
  - Myocardial infarction [Unknown]
  - Parotid gland enlargement [Unknown]
  - Osteopenia [Unknown]
  - Hip arthroplasty [Unknown]
  - Arthralgia [Unknown]
  - Oedema peripheral [Unknown]
  - Joint swelling [Unknown]
  - Pain in extremity [Unknown]
  - Pyrexia [Unknown]
  - Lymphadenopathy [Unknown]
  - Sjogren^s syndrome [Unknown]
  - General physical health deterioration [Unknown]
  - Tendon pain [Unknown]
  - Spinal osteoarthritis [Unknown]
  - Foot deformity [Unknown]
  - Foot deformity [Unknown]
  - Osteoarthritis [Unknown]
  - Nephrolithiasis [Unknown]
  - Rheumatoid arthritis [Unknown]
